FAERS Safety Report 8816845 (Version 1)
Quarter: 2012Q4

REPORT INFORMATION
  Report Type: Spontaneous
  Country: US (occurrence: None)
  Receive Date: 20121001
  Receipt Date: 20121001
  Transmission Date: 20130627
  Serious: Yes (Other)
  Sender: FDA-Public Use
  Company Number: None

PATIENT
  Age: 26 Year
  Sex: Female
  Weight: 67.13 kg

DRUGS (2)
  1. ADDERALL [Suspect]
     Indication: ADHD
     Dosage: 30mg 1 pill in morning
     Dates: start: 2007, end: 2011
  2. AMPHETAMINE [Suspect]
     Indication: ADHD
     Dosage: 30mg 1 pill in morning
     Dates: start: 2010

REACTIONS (6)
  - Product substitution issue [None]
  - Irritability [None]
  - Feeling abnormal [None]
  - Migraine [None]
  - Fatigue [None]
  - Weight increased [None]
